FAERS Safety Report 25665551 (Version 2)
Quarter: 2025Q3

REPORT INFORMATION
  Report Type: Spontaneous
  Country: CA (occurrence: CA)
  Receive Date: 20250811
  Receipt Date: 20250905
  Transmission Date: 20251020
  Serious: Yes (Other)
  Sender: NOVARTIS
  Company Number: CA-002147023-NVSC2025CA125133

PATIENT

DRUGS (1)
  1. SECUKINUMAB [Suspect]
     Active Substance: SECUKINUMAB
     Indication: Ankylosing spondylitis
     Route: 065

REACTIONS (6)
  - Pancreatitis [Unknown]
  - Hepatitis [Unknown]
  - Gastritis [Unknown]
  - Pharyngitis [Unknown]
  - Pleural effusion [Unknown]
  - Anaemia [Unknown]
